FAERS Safety Report 7009317-8 (Version None)
Quarter: 2010Q3

REPORT INFORMATION
  Report Type: 
  Country: None (occurrence: None)
  Receive Date: 20100923
  Receipt Date: 20100915
  Transmission Date: 20110219
  Serious: Yes (Hospitalization)
  Sender: FDA-Public Use
  Company Number: DE-NOVOPROD-284533

PATIENT
  Age: 71 Year
  Sex: Male
  Weight: 85 kg

DRUGS (18)
  1. LEVEMIR [Suspect]
     Indication: TYPE 2 DIABETES MELLITUS
     Dosage: 14 U, QD
     Route: 058
     Dates: start: 20080101
  2. NOVORAPID [Suspect]
     Indication: TYPE 2 DIABETES MELLITUS
     Dosage: 42 IU, QD
     Route: 058
     Dates: start: 20080101, end: 20080905
  3. NOVORAPID [Suspect]
     Dosage: 10 U, QD
     Dates: start: 20080906, end: 20080906
  4. NOVORAPID [Suspect]
     Dosage: 14U AT 07:00 HRS, 6U AT 11:00 HRS, 4U AT 17:00 HRS
     Dates: start: 20080907, end: 20080907
  5. NOVORAPID [Suspect]
     Dosage: 10U AT 07:00 HRS, 4U AT 11:00 HRS, 4U AT 17:00 HRS.
     Dates: start: 20080908, end: 20080908
  6. NOVORAPID [Suspect]
     Dosage: 10U AT 07:00 HRS, 4U AT 11:00 HRS.
     Dates: start: 20080909, end: 20080909
  7. ENALAPRIL [Suspect]
     Dosage: 20 MG, QD
     Route: 048
     Dates: start: 20060101
  8. LERCANIDIPINE [Suspect]
     Dosage: 10 MG, QD
     Route: 048
     Dates: start: 20060101
  9. OPIPRAMOL [Suspect]
     Dosage: 50 MG, BID
     Route: 048
     Dates: start: 20070101, end: 20080906
  10. TARGIN [Interacting]
     Dosage: 1 DF, BID
     Route: 048
     Dates: start: 20070101
  11. TARGIN [Interacting]
     Dosage: .5 DF, BID
     Route: 048
  12. LANTUS OPTISET [Concomitant]
     Indication: TYPE 2 DIABETES MELLITUS
     Dosage: 14 U, QD
     Dates: start: 20080910
  13. CLOPIDOGREL [Concomitant]
     Dosage: 75 MG, QD
     Route: 048
     Dates: start: 20050801
  14. MELPERONE [Concomitant]
     Dosage: 50 MG, QD
     Route: 048
     Dates: start: 20080401, end: 20080909
  15. MELPERONE [Concomitant]
     Route: 048
  16. CYMBALTA [Concomitant]
     Dosage: 30 MG, QD
     Route: 048
     Dates: start: 20080909
  17. PENTOXYFYLLIN [Concomitant]
     Dosage: 600 MG, TID
     Route: 048
     Dates: start: 20050101
  18. PLETAL [Concomitant]
     Dosage: 50 MG, BID
     Route: 048

REACTIONS (4)
  - DECREASED APPETITE [None]
  - HYPOGLYCAEMIA [None]
  - VERTIGO [None]
  - WEIGHT DECREASED [None]
